FAERS Safety Report 9420038 (Version 3)
Quarter: 2014Q2

REPORT INFORMATION
  Report Type: Spontaneous
  Country: US (occurrence: US)
  Receive Date: 20130725
  Receipt Date: 20140401
  Transmission Date: 20141212
  Serious: Yes (Hospitalization)
  Sender: FDA-Public Use
  Company Number: US-GLAXOSMITHKLINE-A1001879A

PATIENT
  Sex: Male
  Weight: 104.5 kg

DRUGS (2)
  1. AVANDIA [Suspect]
     Indication: DIABETES MELLITUS
     Dosage: 8MG PER DAY
     Route: 048
     Dates: start: 200311, end: 200806
  2. AVANDAMET [Suspect]
     Indication: DIABETES MELLITUS
     Route: 048
     Dates: start: 200509, end: 200510

REACTIONS (3)
  - Myocardial ischaemia [Not Recovered/Not Resolved]
  - Angina pectoris [Unknown]
  - Coronary artery disease [Unknown]
